FAERS Safety Report 10224346 (Version 2)
Quarter: 2014Q2

REPORT INFORMATION
  Report Type: Spontaneous
  Country: US (occurrence: US)
  Receive Date: 20140609
  Receipt Date: 20140616
  Transmission Date: 20141212
  Serious: Yes (Life-Threatening, Hospitalization)
  Sender: FDA-Public Use
  Company Number: US-SA-2014SA071467

PATIENT
  Age: 10 Year
  Sex: Male

DRUGS (1)
  1. APIDRA [Suspect]
     Indication: TYPE 1 DIABETES MELLITUS
     Dosage: FREQUENCY:IN PUMP DOSE:50 UNIT(S)
     Route: 065
     Dates: start: 2012

REACTIONS (2)
  - Ketoacidosis [Not Recovered/Not Resolved]
  - Drug ineffective [Unknown]
